FAERS Safety Report 5078167-4 (Version None)
Quarter: 2006Q3

REPORT INFORMATION
  Report Type: 
  Country: None (occurrence: None)
  Receive Date: 20060725
  Receipt Date: 20060516
  Transmission Date: 20061208
  Serious: No
  Sender: FDA-Public Use
  Company Number: 2006-BP-05562BP

PATIENT
  Sex: 0

DRUGS (4)
  1. APTIVUS/RITONAVIR CAPSULES [Suspect]
     Dosage: PO
     Route: 048
  2. BACTRIM [Concomitant]
  3. ZIAGIN (ABACAVIR SULFATE) [Concomitant]
  4. EIVIR (ALL OTHER THERAPEUTIC PRODUCTS) [Concomitant]

REACTIONS (1)
  - PLATELET COUNT DECREASED [None]
